FAERS Safety Report 14997105 (Version 1)
Quarter: 2018Q2

REPORT INFORMATION
  Report Type: Spontaneous
  Country: US (occurrence: US)
  Receive Date: 20180611
  Receipt Date: 20180611
  Transmission Date: 20180711
  Serious: Yes (Other)
  Sender: FDA-Public Use
  Company Number: US-IMPAX LABORATORIES, INC-2018-IPXL-01946

PATIENT
  Age: 60 Year
  Sex: Male

DRUGS (1)
  1. DOXYCYCLINE HYCLATE DELAYED RELEASE [Suspect]
     Active Substance: DOXYCYCLINE HYCLATE
     Indication: TULARAEMIA
     Dosage: UNK
     Route: 065

REACTIONS (2)
  - Tularaemia [Recovering/Resolving]
  - Cranial nerve disorder [Recovering/Resolving]
